FAERS Safety Report 6403733-0 (Version None)
Quarter: 2009Q4

REPORT INFORMATION
  Report Type: 
  Country: None (occurrence: None)
  Receive Date: 20091015
  Receipt Date: 20091015
  Transmission Date: 20100525
  Serious: Yes (Life-Threatening, Hospitalization, Other)
  Sender: FDA-Public Use
  Company Number: None

PATIENT
  Age: 51 Year
  Sex: Female
  Weight: 65.7716 kg

DRUGS (1)
  1. TAMOXIFEN CITRATE [Suspect]
     Indication: BREAST CANCER
     Dosage: 2 TABLETS DAILY PO
     Route: 048
     Dates: start: 20001201, end: 20050401

REACTIONS (4)
  - HAEMORRHAGE [None]
  - POSTOPERATIVE HERNIA [None]
  - PROCEDURAL COMPLICATION [None]
  - SARCOMA UTERUS [None]
